FAERS Safety Report 11106915 (Version 1)
Quarter: 2015Q2

REPORT INFORMATION
  Report Type: Spontaneous
  Country: US (occurrence: US)
  Receive Date: 20150512
  Receipt Date: 20150512
  Transmission Date: 20150821
  Serious: No
  Sender: FDA-Public Use
  Company Number: US-B.I. PHARMACEUTICALS,INC./RIDGEFIELD-2015-BI-23455BP

PATIENT
  Sex: Female

DRUGS (1)
  1. MICARDIS [Suspect]
     Active Substance: TELMISARTAN
     Indication: HYPERTENSION
     Dosage: 40 MG
     Route: 065

REACTIONS (7)
  - Blood glucose decreased [Unknown]
  - Drug intolerance [Unknown]
  - Hyperhidrosis [Unknown]
  - Fall [Unknown]
  - Asthenia [Unknown]
  - Weight decreased [Unknown]
  - Lethargy [Unknown]
